FAERS Safety Report 13474037 (Version 1)
Quarter: 2017Q2

REPORT INFORMATION
  Report Type: Spontaneous
  Country: US (occurrence: US)
  Receive Date: 20170424
  Receipt Date: 20170424
  Transmission Date: 20170830
  Serious: No
  Sender: FDA-Public Use
  Company Number: US-SA-2017SA022853

PATIENT
  Age: 62 Year
  Sex: Female

DRUGS (1)
  1. LOVENOX [Suspect]
     Active Substance: ENOXAPARIN SODIUM
     Indication: THROMBOSIS
     Route: 065
     Dates: start: 20141218

REACTIONS (11)
  - Coagulopathy [Unknown]
  - Limb discomfort [Unknown]
  - Injection site erythema [Not Recovered/Not Resolved]
  - Injection site discolouration [Not Recovered/Not Resolved]
  - Nervous system disorder [Unknown]
  - Pigmentation disorder [Unknown]
  - Hypoaesthesia [Unknown]
  - Injection site pain [Not Recovered/Not Resolved]
  - Claustrophobia [Unknown]
  - Paraesthesia [Unknown]
  - Muscular weakness [Unknown]
